FAERS Safety Report 9782970 (Version 2)
Quarter: 2014Q1

REPORT INFORMATION
  Report Type: Spontaneous
  Country: US (occurrence: US)
  Receive Date: 20131226
  Receipt Date: 20140108
  Transmission Date: 20141002
  Serious: Yes (Hospitalization)
  Sender: FDA-Public Use
  Company Number: US-PFIZER INC-2013367313

PATIENT
  Age: 53 Year
  Sex: Female

DRUGS (7)
  1. CELECOXIB [Suspect]
     Dosage: 200 MG, UNK
  2. LISINOPRIL [Suspect]
     Dosage: 20 MG, DAILY
  3. FUROSEMIDE [Suspect]
     Dosage: 40 MG, DAILY
  4. FUROSEMIDE [Suspect]
     Dosage: 80 MG, UNK
     Route: 042
  5. FUROSEMIDE [Suspect]
     Dosage: 10 MG/H INFUSION
     Route: 042
  6. HYDROCHLOROTHIAZIDE [Suspect]
     Dosage: 25 MG, DAILY
  7. OLMESARTAN [Suspect]
     Dosage: 40 MG, DAILY

REACTIONS (2)
  - Renal failure acute [Recovered/Resolved]
  - Renal impairment [Recovered/Resolved]
